FAERS Safety Report 4503502-2 (Version None)
Quarter: 2004Q4

REPORT INFORMATION
  Report Type: 
  Country: None (occurrence: None)
  Receive Date: 20041115
  Receipt Date: 20041101
  Transmission Date: 20050328
  Serious: No
  Sender: FDA-Public Use
  Company Number: 2004AP05600

PATIENT
  Age: 16 Year
  Sex: Female

DRUGS (2)
  1. MEROPENEM [Suspect]
     Indication: BLADDER DISORDER
     Dates: start: 20040216, end: 20040221
  2. VALPROATE SODIUM [Suspect]

REACTIONS (3)
  - CONVULSION [None]
  - DISEASE RECURRENCE [None]
  - DRUG INTERACTION [None]
